FAERS Safety Report 20893973 (Version 1)
Quarter: 2022Q2

REPORT INFORMATION
  Report Type: Spontaneous
  Country: US (occurrence: US)
  Receive Date: 20220531
  Receipt Date: 20220531
  Transmission Date: 20220721
  Serious: Yes (Other)
  Sender: FDA-Public Use
  Company Number: MIQ-05252022-2521

PATIENT
  Age: 37 Year
  Sex: Female

DRUGS (1)
  1. IVERMECTIN [Suspect]
     Active Substance: IVERMECTIN
     Indication: Acarodermatitis
     Dosage: 20 TABLET
     Route: 048
     Dates: start: 2022

REACTIONS (20)
  - Vision blurred [Unknown]
  - Eye irritation [Unknown]
  - Eye contusion [Unknown]
  - Contusion [Unknown]
  - Sleep disorder [Unknown]
  - Rhinorrhoea [Unknown]
  - Weight decreased [Unknown]
  - Decreased appetite [Unknown]
  - Spinal pain [Unknown]
  - Bone pain [Unknown]
  - Eye pruritus [Unknown]
  - Panic attack [Unknown]
  - Skin ulcer [Unknown]
  - Dizziness [Unknown]
  - Nausea [Unknown]
  - Headache [Unknown]
  - Fatigue [Unknown]
  - Abdominal pain upper [Unknown]
  - Pain [Unknown]
  - Product use in unapproved indication [Unknown]

NARRATIVE: CASE EVENT DATE: 20220101
